FAERS Safety Report 12866866 (Version 4)
Quarter: 2016Q4

REPORT INFORMATION
  Report Type: Report from Study
  Country: CO (occurrence: CO)
  Receive Date: 20161020
  Receipt Date: 20161118
  Transmission Date: 20170207
  Serious: Yes (Hospitalization)
  Sender: FDA-Public Use
  Company Number: PHHO2016CO000556

PATIENT
  Age: 71 Year
  Sex: Female
  Weight: 49.5 kg

DRUGS (6)
  1. BYL719 [Suspect]
     Active Substance: ALPELISIB
     Indication: BREAST CANCER
     Dosage: 300 MG, UNK
     Route: 048
     Dates: start: 20150907, end: 20160103
  2. LEVOTHYROXINE. [Concomitant]
     Active Substance: LEVOTHYROXINE
     Indication: HYPERTHYROIDISM
     Dosage: 75 UG, UNK
     Route: 065
     Dates: start: 1995
  3. COMPARATOR LETROZOLE [Suspect]
     Active Substance: LETROZOLE
     Dosage: 2.5 MG, QD
     Route: 048
     Dates: start: 20160125
  4. BYL719 [Suspect]
     Active Substance: ALPELISIB
     Dosage: UNK
     Route: 048
     Dates: start: 20160125
  5. COMPARATOR LETROZOLE [Suspect]
     Active Substance: LETROZOLE
     Indication: BREAST CANCER
     Dosage: 2.5 MG, UNK
     Route: 048
     Dates: start: 20150907, end: 20160103
  6. ENALAPRIL [Concomitant]
     Active Substance: ENALAPRIL
     Indication: HYPERTENSION
     Dosage: 5 MG, UNK
     Route: 065
     Dates: start: 1995

REACTIONS (3)
  - Pleural effusion [Recovered/Resolved]
  - Deep vein thrombosis [Recovered/Resolved]
  - Gastroenteritis [Recovered/Resolved]

NARRATIVE: CASE EVENT DATE: 20160104
